FAERS Safety Report 9664525 (Version 3)
Quarter: 2013Q4

REPORT INFORMATION
  Report Type: Report from Study
  Country: DE (occurrence: DE)
  Receive Date: 20131101
  Receipt Date: 20131104
  Transmission Date: 20140711
  Serious: Yes (Hospitalization)
  Sender: FDA-Public Use
  Company Number: PHHO2013DE008522

PATIENT
  Sex: 0

DRUGS (3)
  1. CERTICAN [Suspect]
     Indication: LIVER TRANSPLANT
     Dosage: 1.75 MG, BID
     Dates: start: 20130423, end: 20130505
  2. CERTICAN [Suspect]
     Dosage: 1 MG, BID
     Dates: start: 20130506, end: 20130625
  3. TACROLIMUS [Suspect]
     Indication: LIVER TRANSPLANT
     Dosage: UNK
     Route: 048
     Dates: start: 20130423

REACTIONS (1)
  - Hepatic steatosis [Recovered/Resolved]
